FAERS Safety Report 23588986 (Version 2)
Quarter: 2024Q1

REPORT INFORMATION
  Report Type: Report from Study
  Country: SA (occurrence: SA)
  Receive Date: 20240303
  Receipt Date: 20240315
  Transmission Date: 20240410
  Serious: Yes (Hospitalization, Other)
  Sender: FDA-Public Use
  Company Number: SA-AUROBINDO-AUR-APL-2024-009552

PATIENT
  Age: 5 Year
  Sex: Male
  Weight: 12 kg

DRUGS (4)
  1. VALPROIC ACID [Suspect]
     Active Substance: VALPROIC ACID
     Indication: Cerebral palsy
     Dosage: UNK(FOR }3YEARS)
     Route: 065
  2. VALPROIC ACID [Suspect]
     Active Substance: VALPROIC ACID
     Indication: Seizure
  3. LEVETIRACETAM [Suspect]
     Active Substance: LEVETIRACETAM
     Indication: Cerebral palsy
     Dosage: UNK(FOR }3YEARS)
     Route: 065
  4. LEVETIRACETAM [Suspect]
     Active Substance: LEVETIRACETAM
     Indication: Seizure

REACTIONS (4)
  - Epiphysiolysis [Recovered/Resolved]
  - Vitamin D deficiency [Unknown]
  - Periventricular leukomalacia [Unknown]
  - Intraventricular haemorrhage neonatal [Unknown]
